FAERS Safety Report 9299818 (Version 1)
Quarter: 2013Q1

REPORT INFORMATION
  Report Type: Spontaneous
  Country: US (occurrence: None)
  Receive Date: 20121227
  Receipt Date: 20121227
  Transmission Date: 20140127
  Serious: Yes (Other)
  Sender: FDA-Public Use
  Company Number: PHEH2012US017596

PATIENT
  Age: 63 Year
  Sex: Female
  Weight: 121.6 kg

DRUGS (11)
  1. AFINITOR [Suspect]
     Indication: BREAST CANCER METASTATIC
     Route: 048
     Dates: start: 20120725, end: 20120817
  2. AROMASIN (EXEMESTANE) [Concomitant]
  3. XGEVA (DENOSUMAB) [Concomitant]
  4. ACIPHEX (RABEPRAZOLE SODIUM) [Concomitant]
  5. METFORMIN (METFORMIN) [Concomitant]
  6. NEURONTIN (GABAPENTIN) [Concomitant]
  7. LIPITOR (ATORVASTATATIN CALCIUM) [Concomitant]
  8. COREG (CARVEDILOL) [Concomitant]
  9. ZOFRAN (ONDANSETRON HYDROCHLORIDE) [Concomitant]
  10. PHENERGAN (CEPHAELIS SPP, FLUID EXTRACT, CHLOROFORM, CITRIC ACID, DEXTROMETHORPHAN HYDROBROMIDE, PROMETHAZINE HYDROCHLORIDE, SODIUDM CITRATED, SULFOGAIACOL) [Concomitant]
  11. LORTAB (HYDROCODONE BITARTRATE, PARACETAMOL) [Concomitant]

REACTIONS (1)
  - Thrombocytopenia [None]
